FAERS Safety Report 24355982 (Version 2)
Quarter: 2024Q4

REPORT INFORMATION
  Report Type: Spontaneous
  Country: DE (occurrence: DE)
  Receive Date: 20240924
  Receipt Date: 20241003
  Transmission Date: 20250115
  Serious: Yes (Death, Hospitalization, Other)
  Sender: CELLTRION
  Company Number: DE-ROCHE-3531444

PATIENT

DRUGS (3)
  1. BEVACIZUMAB [Suspect]
     Active Substance: BEVACIZUMAB
     Indication: Neoplasm malignant
     Dosage: ON 08/NOV/2023, RECEIVED THE MOST RECENT DOSE OF CAPECITABINE 652.5 MG PRIOR TO AE/SAE, EVERY 3 WEEK
     Route: 042
     Dates: start: 20231010, end: 20231108
  2. OXALIPLATIN [Suspect]
     Active Substance: OXALIPLATIN
     Indication: Neoplasm malignant
     Dosage: ON 08/NOV/2023, RECEIVED THE MOST RECENT DOSE OF CAPECITABINE 267.8 MG PRIOR TO AE/SAE, EVERY 3 WEEK
     Route: 042
     Dates: start: 20231018, end: 20231108
  3. CAPECITABINE [Suspect]
     Active Substance: CAPECITABINE
     Indication: Neoplasm malignant
     Dosage: ON 20/OCT/2023, RECEIVED THE MOST RECENT DOSE OF CAPECITABINE 1000 MG PRIOR TO AE/SAE, 0.5 DAY
     Route: 048
     Dates: start: 20231018, end: 20231102

REACTIONS (3)
  - Neoplasm malignant [Fatal]
  - Hypersensitivity [Recovered/Resolved]
  - Diarrhoea [Not Recovered/Not Resolved]

NARRATIVE: CASE EVENT DATE: 20231021
